FAERS Safety Report 17938357 (Version 3)
Quarter: 2020Q3

REPORT INFORMATION
  Report Type: Spontaneous
  Country: DE (occurrence: DE)
  Receive Date: 20200624
  Receipt Date: 20200703
  Transmission Date: 20201103
  Serious: Yes (Hospitalization, Other)
  Sender: FDA-Public Use
  Company Number: DE-PFIZER INC-2020243924

PATIENT
  Age: 83 Year
  Sex: Male

DRUGS (7)
  1. ATORVASTATIN [Concomitant]
     Active Substance: ATORVASTATIN
     Dosage: 80 MG, QD (0?0?1?0)
     Route: 048
  2. HYDROCHLOROTHIAZIDE. [Interacting]
     Active Substance: HYDROCHLOROTHIAZIDE
     Dosage: 25 MG, 1X/DAY
     Route: 048
  3. RIVAROXABAN [Concomitant]
     Active Substance: RIVAROXABAN
     Dosage: 15 MG, QD (1?0?0?0)
     Route: 048
  4. RAMIPRIL. [Suspect]
     Active Substance: RAMIPRIL
     Dosage: 5 MG, 1X/DAY
     Route: 048
  5. METOPROLOL. [Interacting]
     Active Substance: METOPROLOL
     Dosage: 95 MG, 2X/DAY
     Route: 048
  6. MOVICOL [Concomitant]
     Active Substance: POLYETHYLENE GLYCOL 3350\POTASSIUM CHLORIDE\SODIUM BICARBONATE\SODIUM CHLORIDE
     Dosage: UNK
     Route: 048
  7. LEVOTHYROXINE SODIUM. [Concomitant]
     Active Substance: LEVOTHYROXINE SODIUM
     Dosage: 0.03 MG, QD
     Route: 048

REACTIONS (10)
  - Tachycardia [Unknown]
  - Cognitive disorder [Unknown]
  - Troponin increased [Unknown]
  - Gait disturbance [Unknown]
  - Dysuria [Unknown]
  - Product prescribing error [Unknown]
  - Labelled drug-drug interaction medication error [Unknown]
  - Renal impairment [Unknown]
  - Infection [Unknown]
  - Atrial fibrillation [Unknown]
